FAERS Safety Report 8994425 (Version 1)
Quarter: 2012Q4

REPORT INFORMATION
  Report Type: Spontaneous
  Country: US (occurrence: None)
  Receive Date: 20121228
  Receipt Date: 20121228
  Transmission Date: 20130627
  Serious: Yes (Life-Threatening, Hospitalization)
  Sender: FDA-Public Use
  Company Number: None

PATIENT
  Age: 58 Year
  Sex: Male
  Weight: 84.5 kg

DRUGS (1)
  1. MELOXICAM [Suspect]
     Indication: JOINT PAIN
     Route: 048
     Dates: start: 20121005, end: 20121009

REACTIONS (1)
  - Angioedema [None]
